FAERS Safety Report 13064932 (Version 2)
Quarter: 2017Q1

REPORT INFORMATION
  Report Type: Spontaneous
  Country: JP (occurrence: JP)
  Receive Date: 20161227
  Receipt Date: 20170227
  Transmission Date: 20170428
  Serious: Yes (Other)
  Sender: FDA-Public Use
  Company Number: JP-PFIZER INC-2016594135

PATIENT
  Age: 49 Year
  Sex: Male

DRUGS (8)
  1. GASTER [Concomitant]
     Active Substance: FAMOTIDINE
     Dosage: 10 MG, 3X/DAY (IN THE MORNING, NOON AND EVENING )
     Route: 048
  2. OLMETEC [Concomitant]
     Active Substance: OLMESARTAN MEDOXOMIL
  3. LANSOPRAZOLE. [Concomitant]
     Active Substance: LANSOPRAZOLE
  4. NORVASC [Suspect]
     Active Substance: AMLODIPINE BESYLATE
     Dosage: 2.5 MG, 1X/DAY (IN THE MORNING)
  5. GASTER [Concomitant]
     Active Substance: FAMOTIDINE
     Dosage: 20 MG, 2X/DAY (IN THE MORNING AND EVENING )
     Route: 048
  6. NORVASC [Suspect]
     Active Substance: AMLODIPINE BESYLATE
     Dosage: 5 MG, 1X/DAY (IN THE MORNING)
     Route: 048
  7. TRANEXAMIC ACID. [Concomitant]
     Active Substance: TRANEXAMIC ACID
     Route: 048
  8. BIOFERMIN /07746301/ [Concomitant]

REACTIONS (7)
  - Dizziness [Recovering/Resolving]
  - Head discomfort [Unknown]
  - Hot flush [Unknown]
  - Blood pressure decreased [Unknown]
  - Headache [Unknown]
  - Loss of consciousness [Recovering/Resolving]
  - Gastrooesophageal reflux disease [Unknown]
